FAERS Safety Report 8419869-9 (Version None)
Quarter: 2012Q2

REPORT INFORMATION
  Report Type: 
  Country: None (occurrence: None)
  Receive Date: 20120323
  Receipt Date: 20111117
  Transmission Date: 20120825
  Serious: Yes (Other)
  Sender: FDA-Public Use
  Company Number: 163-21880-11112677

PATIENT
  Age: 45 Year
  Sex: Male

DRUGS (13)
  1. REVLIMID [Suspect]
     Indication: MULTIPLE MYELOMA
     Dosage: 10 MG, 1 IN 1 D, PO ; 25 MG, 1 IN 1 D, PO
     Route: 048
     Dates: start: 20090601, end: 20090101
  2. REVLIMID [Suspect]
     Indication: MULTIPLE MYELOMA
     Dosage: 10 MG, 1 IN 1 D, PO ; 25 MG, 1 IN 1 D, PO
     Route: 048
     Dates: start: 20100701, end: 20100101
  3. XANAX [Concomitant]
  4. MULTIVITAMIN [Concomitant]
  5. LYRICA [Concomitant]
  6. PRILOSEC [Concomitant]
  7. BENADRYL [Concomitant]
  8. MORPHINE [Concomitant]
  9. FLOMAX [Concomitant]
  10. ACYCLOVIR [Concomitant]
  11. CYMBALTA [Concomitant]
  12. MICRO K (POTASSIUM CHLORIDE) [Concomitant]
  13. COMPAZINE [Concomitant]

REACTIONS (1)
  - MULTIPLE MYELOMA [None]
